FAERS Safety Report 5755494-6 (Version None)
Quarter: 2008Q2

REPORT INFORMATION
  Report Type: 
  Country: None (occurrence: None)
  Receive Date: 20080528
  Receipt Date: 20080514
  Transmission Date: 20081010
  Serious: Yes (Death, Hospitalization, Other)
  Sender: FDA-Public Use
  Company Number: A-US2008-20590

PATIENT
  Age: 61 Year
  Sex: Female

DRUGS (11)
  1. TRACLEER [Suspect]
     Indication: PULMONARY HYPERTENSION
     Dosage: 125 MG, BID, ORAL; 62.5 MG, BID, ORAL
     Route: 048
     Dates: start: 20050101, end: 20050201
  2. TRACLEER [Suspect]
     Indication: PULMONARY HYPERTENSION
     Dosage: 125 MG, BID, ORAL; 62.5 MG, BID, ORAL
     Route: 048
     Dates: start: 20050201
  3. SILDENAFIL (SILDENAFIL) TABLET [Concomitant]
  4. COUMADIN [Concomitant]
  5. SIMVASTATIN [Concomitant]
  6. RAMIPRIL [Concomitant]
  7. LASIX [Concomitant]
  8. BIAXIN [Concomitant]
  9. VENTOLIN [Concomitant]
  10. FLONASE [Concomitant]
  11. OXYGEN (OXYGEN) [Concomitant]

REACTIONS (11)
  - BLOOD GLUCOSE DECREASED [None]
  - CARDIAC FAILURE CONGESTIVE [None]
  - CHEST DISCOMFORT [None]
  - CONFUSIONAL STATE [None]
  - EPISTAXIS [None]
  - FALL [None]
  - HYPOGLYCAEMIA [None]
  - HYPOTENSION [None]
  - INTERNATIONAL NORMALISED RATIO INCREASED [None]
  - OEDEMA PERIPHERAL [None]
  - PNEUMONIA [None]
